FAERS Safety Report 9606309 (Version 1)
Quarter: 2013Q4

REPORT INFORMATION
  Report Type: Spontaneous
  Country: US (occurrence: US)
  Receive Date: 20131008
  Receipt Date: 20131008
  Transmission Date: 20140711
  Serious: Yes (Other)
  Sender: FDA-Public Use
  Company Number: US-KOWA-2013S1001824

PATIENT
  Sex: Male

DRUGS (1)
  1. LIVALO [Suspect]
     Indication: BLOOD CHOLESTEROL
     Route: 048
     Dates: start: 2012

REACTIONS (3)
  - Retinal tear [Not Recovered/Not Resolved]
  - Retinal detachment [Recovered/Resolved]
  - Vision blurred [Not Recovered/Not Resolved]
